FAERS Safety Report 9371185 (Version 2)
Quarter: 2013Q3

REPORT INFORMATION
  Report Type: Report from Study
  Country: US (occurrence: US)
  Receive Date: 20130627
  Receipt Date: 20130802
  Transmission Date: 20140515
  Serious: Yes (Other)
  Sender: FDA-Public Use
  Company Number: US-ROCHE-1241837

PATIENT
  Age: 23 Year
  Sex: Female

DRUGS (9)
  1. RITUXAN [Suspect]
     Indication: LYMPHOMA
     Route: 042
  2. RITUXAN [Suspect]
     Route: 042
  3. PALONOSETRON [Concomitant]
     Route: 042
  4. DEXAMETHASONE [Concomitant]
     Route: 042
  5. DEXAMETHASONE [Concomitant]
     Route: 042
  6. VINCRISTINE [Concomitant]
     Route: 042
  7. DOXORUBICIN [Concomitant]
     Route: 042
  8. CYCLOPHOSPHAMIDE [Concomitant]
     Route: 042
  9. CYCLOPHOSPHAMIDE [Concomitant]
     Route: 065

REACTIONS (3)
  - Embolism [Unknown]
  - Thrombosis [Unknown]
  - Laboratory test abnormal [Unknown]
